FAERS Safety Report 8311771-6 (Version None)
Quarter: 2012Q2

REPORT INFORMATION
  Report Type: 
  Country: None (occurrence: None)
  Receive Date: 20120425
  Receipt Date: 20120419
  Transmission Date: 20120825
  Serious: Yes (Other)
  Sender: FDA-Public Use
  Company Number: PHHY2011MX67502

PATIENT
  Age: 81 Year
  Sex: Female

DRUGS (1)
  1. DIOVAN HCT [Suspect]
     Indication: HYPERTENSION
     Dosage: 80 MG VALSARTAN/12.5 MG HYDROCHLOROTHIAZIDE, PER DAY
     Dates: start: 20090701

REACTIONS (7)
  - BLINDNESS UNILATERAL [None]
  - POOR PERIPHERAL CIRCULATION [None]
  - LUNG DISORDER [None]
  - VISUAL IMPAIRMENT [None]
  - CATARACT [None]
  - MALAISE [None]
  - INFLUENZA [None]
